FAERS Safety Report 10377690 (Version 1)
Quarter: 2014Q3

REPORT INFORMATION
  Report Type: Report from Study
  Country: BR (occurrence: BR)
  Receive Date: 20140812
  Receipt Date: 20140812
  Transmission Date: 20150326
  Serious: Yes (Other)
  Sender: FDA-Public Use
  Company Number: PHHY2014BR097885

PATIENT
  Age: 63 Year
  Sex: Male
  Weight: 97 kg

DRUGS (10)
  1. OXYGEN. [Concomitant]
     Active Substance: OXYGEN
     Dosage: 2 LITERS PER MIN
  2. DONAREN [Concomitant]
     Active Substance: TRAZODONE HYDROCHLORIDE
     Indication: OBSESSIVE-COMPULSIVE DISORDER
     Dosage: UNK UKN, UNK
  3. BAMIFYLLINE [Concomitant]
     Active Substance: BAMIFYLLINE
     Dosage: 600 MG, BID
  4. OXYGEN. [Concomitant]
     Active Substance: OXYGEN
     Dosage: 15-18 HOURS A DAY
  5. BROMAZEPAN [Concomitant]
     Indication: OBSESSIVE-COMPULSIVE DISORDER
     Dosage: UNK UKN, UNK
  6. LITHIUM [Concomitant]
     Active Substance: LITHIUM CARBONATE
     Indication: OBSESSIVE-COMPULSIVE DISORDER
     Dosage: UNK UKN, UNK
  7. TIOTROPIUM BROMIDE [Concomitant]
     Active Substance: TIOTROPIUM BROMIDE
     Dosage: 2 APPLICATIONS IN THE MORNING
  8. FENOTEROL W/IPRATROPIUM BROMIDE [Concomitant]
     Dosage: 3 PUFFS 3 TO 4 TIMES A DAY
  9. BUDESONIDE, FORMOTEROL FUMARATE [Suspect]
     Active Substance: BUDESONIDE\FORMOTEROL FUMARATE DIHYDRATE
     Dosage: UNK UKN, TID
  10. SIMVASTATIN. [Concomitant]
     Active Substance: SIMVASTATIN
     Indication: DYSLIPIDAEMIA
     Dosage: UNK UKN, UNK

REACTIONS (17)
  - Gastrointestinal sounds abnormal [Unknown]
  - Haemoglobin increased [Unknown]
  - Oxygen saturation decreased [Unknown]
  - Left ventricular dysfunction [Unknown]
  - Hypotonia [Unknown]
  - Haematocrit increased [Unknown]
  - Oedema peripheral [Unknown]
  - Blood pressure increased [Unknown]
  - Pulmonary arteriopathy [Unknown]
  - Wheezing [Unknown]
  - Dyspnoea [Recovering/Resolving]
  - Pulmonary vascular disorder [Unknown]
  - Abdominal distension [Unknown]
  - Weight decreased [Unknown]
  - Coronary artery disease [Unknown]
  - Emphysema [Unknown]
  - Angiopathy [Unknown]

NARRATIVE: CASE EVENT DATE: 201211
